FAERS Safety Report 8215238-5 (Version None)
Quarter: 2012Q1

REPORT INFORMATION
  Report Type: 
  Country: None (occurrence: None)
  Receive Date: 20120316
  Receipt Date: 20120314
  Transmission Date: 20120608
  Serious: Yes (Hospitalization)
  Sender: FDA-Public Use
  Company Number: US-PFIZER INC-2012067758

PATIENT
  Sex: Female
  Weight: 63.492 kg

DRUGS (14)
  1. JANUVIA [Concomitant]
     Indication: DIABETES MELLITUS
     Dosage: 100 MG, DAILY
  2. ACCURETIC [Suspect]
     Indication: BLOOD CHOLESTEROL INCREASED
  3. ACCUPRIL [Suspect]
     Indication: HYPERTENSION
     Dosage: 5 MG, DAILY
     Route: 048
     Dates: start: 20111101
  4. LANTUS [Concomitant]
     Indication: DIABETES MELLITUS
     Dosage: 26 IU, DAILY
  5. LIPITOR [Suspect]
     Indication: BLOOD CHOLESTEROL INCREASED
  6. ACCUPRIL [Suspect]
     Indication: ARTHRITIS
  7. LIPITOR [Suspect]
     Indication: ARTHRITIS
  8. GLYBURIDE [Concomitant]
     Indication: DIABETES MELLITUS
     Dosage: 10 MG, DAILY
  9. HUMALOG [Concomitant]
     Indication: DIABETES MELLITUS
     Dosage: UNK, DAILY
  10. METFORMIN [Concomitant]
     Indication: DIABETES MELLITUS
     Dosage: 1000 MG, 2X/DAY
  11. ACCURETIC [Suspect]
     Indication: HYPERTENSION
     Dosage: 50 MG, DAILY
     Route: 048
     Dates: start: 20111101
  12. ACCUPRIL [Suspect]
     Indication: BLOOD CHOLESTEROL INCREASED
  13. ACCURETIC [Suspect]
     Indication: ARTHRITIS
  14. LIPITOR [Suspect]
     Indication: HYPERTENSION
     Dosage: 20 MG, DAILY
     Route: 048
     Dates: start: 20111101

REACTIONS (1)
  - APPENDIX DISORDER [None]
